FAERS Safety Report 5939755-3 (Version None)
Quarter: 2008Q4

REPORT INFORMATION
  Report Type: 
  Country: None (occurrence: None)
  Receive Date: 20081031
  Receipt Date: 20081031
  Transmission Date: 20090506
  Serious: Yes (Life-Threatening, Hospitalization)
  Sender: FDA-Public Use
  Company Number: None

PATIENT
  Age: 14 Year
  Sex: Female
  Weight: 60 kg

DRUGS (2)
  1. NUVARING [Suspect]
     Indication: CONTRACEPTION
     Dosage: 0.120/MG/0.015 MG PER DAY ONCE A MONTH VAG
     Route: 067
     Dates: start: 20081026, end: 20081029
  2. NUVARING [Suspect]
     Indication: MENSTRUATION IRREGULAR
     Dosage: 0.120/MG/0.015 MG PER DAY ONCE A MONTH VAG
     Route: 067
     Dates: start: 20081026, end: 20081029

REACTIONS (7)
  - CONFUSIONAL STATE [None]
  - DISORIENTATION [None]
  - DYSARTHRIA [None]
  - EMBOLISM [None]
  - HEADACHE [None]
  - HEMIPARESIS [None]
  - SENSORY DISTURBANCE [None]
